FAERS Safety Report 20772785 (Version 1)
Quarter: 2022Q2

REPORT INFORMATION
  Report Type: Other
  Country: US (occurrence: None)
  Receive Date: 20220502
  Receipt Date: 20220502
  Transmission Date: 20220721
  Serious: Yes (Hospitalization, Other)
  Sender: FDA-Public Use
  Company Number: US-Umedica-000267

PATIENT
  Age: 40 Year
  Sex: Female

DRUGS (1)
  1. CARBAMAZEPINE [Suspect]
     Active Substance: CARBAMAZEPINE
     Indication: Trigeminal neuralgia
     Dosage: 400 MG TWICE DAILY

REACTIONS (5)
  - Neurotoxicity [Recovered/Resolved]
  - Dysmetria [Recovered/Resolved]
  - Ataxia [Recovered/Resolved]
  - Muscular weakness [Recovered/Resolved]
  - Drug level above therapeutic [Recovered/Resolved]
